FAERS Safety Report 12707583 (Version 2)
Quarter: 2016Q4

REPORT INFORMATION
  Report Type: Report from Study
  Country: DE (occurrence: GT)
  Receive Date: 20160901
  Receipt Date: 20161110
  Transmission Date: 20170207
  Serious: Yes (Hospitalization)
  Sender: FDA-Public Use
  Company Number: DE-ACTELION-A-NJ2016-141682

PATIENT
  Age: 40 Year
  Sex: Female

DRUGS (2)
  1. VENTAVIS [Suspect]
     Active Substance: ILOPROST
     Indication: PULMONARY HYPERTENSION
     Dosage: 1 DF, 5ID
     Route: 055
     Dates: start: 20140720
  2. VENTAVIS [Suspect]
     Active Substance: ILOPROST
     Dosage: 1 DIF, TID
     Route: 055
     Dates: start: 20140720, end: 201608

REACTIONS (10)
  - Abdominal pain [Recovered/Resolved]
  - Gait disturbance [Recovered/Resolved]
  - Fatigue [Not Recovered/Not Resolved]
  - Skin discolouration [Recovered/Resolved]
  - Peripheral swelling [Recovered/Resolved]
  - Pulmonary hypertension [Unknown]
  - Abdominal distension [Recovered/Resolved]
  - Pain in extremity [Recovered/Resolved]
  - Depression [Not Recovered/Not Resolved]
  - Product use issue [Unknown]

NARRATIVE: CASE EVENT DATE: 20140720
